FAERS Safety Report 7141519-2 (Version None)
Quarter: 2010Q4

REPORT INFORMATION
  Report Type: 
  Country: None (occurrence: None)
  Receive Date: 20101119
  Receipt Date: 20100702
  Transmission Date: 20110411
  Serious: Yes (Hospitalization)
  Sender: FDA-Public Use
  Company Number: UTC-001230

PATIENT
  Age: 54 Year
  Sex: Female

DRUGS (3)
  1. TYVASO [Suspect]
     Dosage: 216 MCG (54 MCG, 4 IN 1 D), INHALATION
     Route: 055
     Dates: start: 20100105
  2. TRACLEER [Concomitant]
  3. REVATIO [Concomitant]

REACTIONS (1)
  - PNEUMONIA [None]
